FAERS Safety Report 6406147-2 (Version None)
Quarter: 2009Q4

REPORT INFORMATION
  Report Type: 
  Country: None (occurrence: None)
  Receive Date: 20091019
  Receipt Date: 20091007
  Transmission Date: 20100525
  Serious: Yes (Other)
  Sender: FDA-Public Use
  Company Number: US-ELI_LILLY_AND_COMPANY-US200910002406

PATIENT
  Age: 39 Year
  Sex: Male

DRUGS (3)
  1. FLUOXETINE HCL [Suspect]
     Indication: MAJOR DEPRESSION
     Dosage: 20 MG, QOD
     Route: 065
  2. FLUOXETINE HCL [Suspect]
     Dosage: 20 MG, DAILY (1/D)
     Route: 065
  3. LITHIUM CARBONATE [Concomitant]
     Dosage: 600 MG, DAILY (1/D)

REACTIONS (10)
  - ABULIA [None]
  - AKATHISIA [None]
  - ANXIETY [None]
  - DECREASED APPETITE [None]
  - DEPRESSION [None]
  - DRUG INEFFECTIVE [None]
  - NAUSEA [None]
  - RESTLESSNESS [None]
  - SELF-INJURIOUS IDEATION [None]
  - SUICIDAL IDEATION [None]
